FAERS Safety Report 4869636-8 (Version None)
Quarter: 2005Q4

REPORT INFORMATION
  Report Type: 
  Country: None (occurrence: None)
  Receive Date: 20051227
  Receipt Date: 20051226
  Transmission Date: 20060501
  Serious: Yes (Hospitalization)
  Sender: FDA-Public Use
  Company Number: HQWYE071716DEC05

PATIENT
  Age: 67 Year
  Sex: Female

DRUGS (10)
  1. PANTOPRAZOLE SODIUM [Suspect]
     Dosage: 40 MG 1X PER 1 DAY  ORAL
     Route: 048
     Dates: start: 20050811, end: 20050828
  2. DAFLON (DIOSMIN) [Suspect]
     Dosage: 1/DF TWICE DAILY
     Dates: start: 20050811, end: 20050823
  3. KESTINE (EBASTINE) [Suspect]
     Dosage: 1/DF ONCE DAILY
     Dates: start: 20050811, end: 20050823
  4. ZOLOFT [Suspect]
     Dosage: 1/DF ONCE DAILY
     Dates: start: 20050811, end: 20050823
  5. LEVOTHYROXINE SODIUM [Concomitant]
  6. ATENOLOL [Concomitant]
  7. FENOFIBRATE [Concomitant]
  8. OXAZEPAM [Concomitant]
  9. GAVISCON ^SCHERING-PLOUGH^ (ALGELDRATE/ALGINIC ACID/MAGNESIUM TRISILIC [Concomitant]
  10. BIOFLAVONOIDS [Concomitant]

REACTIONS (5)
  - ASTHENIA [None]
  - BLOOD CHLORIDE DECREASED [None]
  - DEPRESSED LEVEL OF CONSCIOUSNESS [None]
  - GENERAL PHYSICAL HEALTH DETERIORATION [None]
  - HYPONATRAEMIA [None]
